FAERS Safety Report 14263368 (Version 1)
Quarter: 2017Q4

REPORT INFORMATION
  Report Type: Spontaneous
  Country: US (occurrence: US)
  Receive Date: 20171208
  Receipt Date: 20171208
  Transmission Date: 20180321
  Serious: Yes (Other)
  Sender: FDA-Public Use
  Company Number: US-LPDUSPRD-20171682

PATIENT
  Age: 13 Year
  Sex: Female

DRUGS (1)
  1. LEVETIRACETAM INJECTION (0517-3605-01) [Suspect]
     Active Substance: LEVETIRACETAM
     Dosage: 10 MG/KG/DAY
     Route: 065

REACTIONS (1)
  - Rhabdomyolysis [Unknown]
